FAERS Safety Report 16227377 (Version 2)
Quarter: 2019Q3

REPORT INFORMATION
  Report Type: Spontaneous
  Country: CH (occurrence: CH)
  Receive Date: 20190423
  Receipt Date: 20190829
  Transmission Date: 20191004
  Serious: Yes (Life-Threatening, Hospitalization)
  Sender: FDA-Public Use
  Company Number: CH-BIOGEN-2019BI00726425

PATIENT
  Age: 1 Year
  Sex: Female
  Weight: 9.6 kg

DRUGS (18)
  1. SPINRAZA [Suspect]
     Active Substance: NUSINERSEN
     Route: 037
     Dates: start: 2018, end: 20181030
  2. SPINRAZA [Suspect]
     Active Substance: NUSINERSEN
     Route: 037
     Dates: start: 2018, end: 20190416
  3. BACTROBAN [Concomitant]
     Active Substance: MUPIROCIN\MUPIROCIN CALCIUM
     Indication: PRODUCT USED FOR UNKNOWN INDICATION
     Route: 065
  4. NASIVINETTEN [Concomitant]
     Indication: PRODUCT USED FOR UNKNOWN INDICATION
     Route: 065
  5. DAFALGAN [Concomitant]
     Active Substance: ACETAMINOPHEN
     Indication: PRODUCT USED FOR UNKNOWN INDICATION
     Route: 065
  6. OSELTAMIVIR [Concomitant]
     Active Substance: OSELTAMIVIR
     Indication: PRODUCT USED FOR UNKNOWN INDICATION
     Route: 065
     Dates: start: 20190311, end: 201903
  7. SPINRAZA [Suspect]
     Active Substance: NUSINERSEN
     Indication: SPINAL MUSCULAR ATROPHY
     Dosage: IN TOTAL
     Route: 037
     Dates: start: 20171215, end: 20171215
  8. SPINRAZA [Suspect]
     Active Substance: NUSINERSEN
     Dosage: IN TOTAL
     Route: 037
     Dates: start: 20171229, end: 20171229
  9. SEVOFLURANE. [Concomitant]
     Active Substance: SEVOFLURANE
     Dosage: IN TOTAL
     Route: 065
     Dates: start: 20180216, end: 20180216
  10. NEXIUM [Concomitant]
     Active Substance: ESOMEPRAZOLE MAGNESIUM
     Indication: PRODUCT USED FOR UNKNOWN INDICATION
     Route: 065
  11. SPINRAZA [Suspect]
     Active Substance: NUSINERSEN
     Dosage: IN TOTAL
     Route: 037
     Dates: start: 20180112, end: 20180112
  12. SEVOFLURANE. [Concomitant]
     Active Substance: SEVOFLURANE
     Indication: PRODUCT USED FOR UNKNOWN INDICATION
     Route: 065
     Dates: start: 20171215, end: 20171215
  13. SEVOFLURANE. [Concomitant]
     Active Substance: SEVOFLURANE
     Route: 065
     Dates: start: 2018, end: 20181030
  14. SEVOFLURANE. [Concomitant]
     Active Substance: SEVOFLURANE
     Dosage: IN TOTAL
     Route: 065
     Dates: start: 20180112, end: 20180112
  15. MALTOFER (FERRIC HYDROXIDE POLYMALTOSE COMPLEX) [Concomitant]
     Active Substance: IRON POLYMALTOSE
     Indication: PRODUCT USED FOR UNKNOWN INDICATION
     Route: 065
  16. SPINRAZA [Suspect]
     Active Substance: NUSINERSEN
     Dosage: IN TOTAL
     Route: 037
     Dates: start: 20180216, end: 20180216
  17. SEVOFLURANE. [Concomitant]
     Active Substance: SEVOFLURANE
     Dosage: IN TOTAL
     Route: 065
     Dates: start: 20171229, end: 20171229
  18. LUVIT D3 [Concomitant]
     Active Substance: CHOLECALCIFEROL
     Indication: PRODUCT USED FOR UNKNOWN INDICATION
     Route: 065

REACTIONS (5)
  - Bronchiolitis [Recovered/Resolved]
  - Rhinovirus infection [Recovered/Resolved]
  - Acute respiratory failure [Recovered/Resolved]
  - Human bocavirus infection [Recovered/Resolved]
  - Constipation [Not Recovered/Not Resolved]

NARRATIVE: CASE EVENT DATE: 2018
